FAERS Safety Report 6914437-X (Version None)
Quarter: 2010Q3

REPORT INFORMATION
  Report Type: 
  Country: None (occurrence: None)
  Receive Date: 20100809
  Receipt Date: 20100728
  Transmission Date: 20110219
  Serious: Yes (Other)
  Sender: FDA-Public Use
  Company Number: CA-PFIZER INC-2010094691

PATIENT

DRUGS (2)
  1. CHAMPIX [Suspect]
     Dosage: UNK
  2. ASPIRIN [Concomitant]
     Dosage: UNK

REACTIONS (2)
  - GASTROINTESTINAL HAEMORRHAGE [None]
  - PEPTIC ULCER [None]
